FAERS Safety Report 21722159 (Version 1)
Quarter: 2022Q4

REPORT INFORMATION
  Report Type: Spontaneous
  Country: FR (occurrence: FR)
  Receive Date: 20221213
  Receipt Date: 20221213
  Transmission Date: 20230113
  Serious: Yes (Hospitalization)
  Sender: FDA-Public Use
  Company Number: None

PATIENT
  Age: 32 Year
  Sex: Female
  Weight: 53 kg

DRUGS (19)
  1. LETERMOVIR [Suspect]
     Active Substance: LETERMOVIR
     Indication: Antiviral prophylaxis
     Dosage: 480 MILLIGRAM, QD
     Route: 048
     Dates: start: 20220920, end: 20221115
  2. CELLCEPT [Suspect]
     Active Substance: MYCOPHENOLATE MOFETIL
     Indication: Prophylaxis against graft versus host disease
     Dosage: 1G (5ML) MORNING 0.5G (2.5ML) NOON 1G (5ML) EVENING (1 GRAM PER 5 MILLILITER)
     Route: 048
     Dates: start: 20220905, end: 20221115
  3. RITUXIMAB [Suspect]
     Active Substance: RITUXIMAB
     Indication: Epstein-Barr virus infection reactivation
     Dosage: 590 MILLIGRAM, QD
     Dates: start: 20220913, end: 20220913
  4. RITUXIMAB [Suspect]
     Active Substance: RITUXIMAB
     Dosage: 590 MILLIGRAM, QD
     Dates: start: 20220903, end: 20220903
  5. RITUXIMAB [Suspect]
     Active Substance: RITUXIMAB
     Dosage: 590 MILLIGRAM, QD
     Dates: start: 20220927, end: 20220927
  6. RITUXIMAB [Suspect]
     Active Substance: RITUXIMAB
     Dosage: 590 MILLIGRAM, QD
     Dates: start: 20220920, end: 20220920
  7. NOXAFIL [Concomitant]
     Active Substance: POSACONAZOLE
     Indication: Antifungal prophylaxis
     Dosage: 7.5 MILLILITER, Q8H
     Route: 048
     Dates: start: 20220905, end: 20221122
  8. PIPERACILLIN SODIUM\TAZOBACTAM SODIUM [Concomitant]
     Active Substance: PIPERACILLIN SODIUM\TAZOBACTAM SODIUM
     Indication: Appendicitis
     Dosage: 4 GRAM, Q6H
     Dates: start: 20221008, end: 20221122
  9. AMINO ACIDS\DEXTROSE\ELECTROLYTES NOS\SOYBEAN OIL [Concomitant]
     Active Substance: AMINO ACIDS\DEXTROSE\ELECTROLYTES NOS\SOYBEAN OIL
     Indication: Parenteral nutrition
     Dosage: 1970 MILLILITER, QD
     Dates: start: 20220905, end: 20221026
  10. ONDANSETRON [Concomitant]
     Active Substance: ONDANSETRON
     Indication: Antiemetic supportive care
     Dosage: 8 MILLIGRAM, QD
     Route: 048
  11. BACTRIM [Concomitant]
     Active Substance: SULFAMETHOXAZOLE\TRIMETHOPRIM
     Indication: Antifungal prophylaxis
     Dosage: MONDAY?WEDNESDAY?THURSDAY
     Route: 048
     Dates: start: 20220728, end: 20221027
  12. BACTRIM [Concomitant]
     Active Substance: SULFAMETHOXAZOLE\TRIMETHOPRIM
     Dosage: MONDAY?WEDNESDAY?THURSDAY
     Route: 048
     Dates: start: 20221102
  13. ACYCLOVIR [Concomitant]
     Active Substance: ACYCLOVIR
     Indication: Herpes ophthalmic
     Dosage: 500 MILLIGRAM, Q8H
     Dates: start: 20220930, end: 20221017
  14. PANTOPRAZOLE [Concomitant]
     Active Substance: PANTOPRAZOLE
     Indication: Prophylaxis against gastrointestinal ulcer
     Dosage: 40 MILLIGRAM, QD
     Route: 048
  15. PENICILLIN V BENZATHINE [Concomitant]
     Active Substance: PENICILLIN V BENZATHINE
     Indication: Antibiotic prophylaxis
     Dosage: 1 MILLION INTERNATIONAL UNIT, Q12H; STRENGTH: 1000000 INTERNATIONAL UNIT PER 10 MILLILITRE
     Route: 048
     Dates: start: 20220728
  16. KARDEGIC [Concomitant]
     Active Substance: ASPIRIN DL-LYSINE
     Indication: Heart disease congenital
     Dosage: 75 MILLIGRAM, QD; FORMULATION: POWDER FOR ORAL SOLUTION IN SACHET?DOSE
     Route: 048
  17. FUROSEMIDE [Concomitant]
     Active Substance: FUROSEMIDE
     Indication: Heart disease congenital
     Dosage: 20 MILLIGRAM, QD
     Route: 048
  18. VALSARTAN [Concomitant]
     Active Substance: VALSARTAN
     Indication: Heart disease congenital
     Dosage: 40 MILLIGRAM, QD
     Route: 048
  19. FILGRASTIM [Concomitant]
     Active Substance: FILGRASTIM
     Indication: Agranulocytosis
     Dosage: 30 MILLION INTERNATIONAL UNIT, QD
     Dates: start: 20221110, end: 20221114

REACTIONS (1)
  - Agranulocytosis [Recovered/Resolved]

NARRATIVE: CASE EVENT DATE: 20221010
